FAERS Safety Report 8785171 (Version 1)
Quarter: 2012Q4

REPORT INFORMATION
  Report Type: Spontaneous
  Country: GB (occurrence: None)
  Receive Date: 20120830
  Receipt Date: 20120830
  Transmission Date: 20130627
  Serious: Yes (Hospitalization)
  Sender: FDA-Public Use
  Company Number: DSA_59080_2012

PATIENT
  Age: 23 Year
  Sex: Male
  Weight: 111.5 kg

DRUGS (4)
  1. ACYCLOVIR [Suspect]
     Dosage: every eight hours Intravenous (not otherwise specified))
     Route: 042
  2. ACYCLOVIR [Suspect]
     Dosage: every eight hours Intravenous (not otherwise specified))
     Route: 042
  3. CEFTRIAXONE [Suspect]
     Dosage: every six hours; Empirically Intravenous (not otherwise specified))
  4. CEFTRIAXONE [Suspect]
     Dosage: every six hours; Empirically Intravenous (not otherwise specified))

REACTIONS (2)
  - Renal failure acute [None]
  - Fatigue [None]
